FAERS Safety Report 8347448-0 (Version None)
Quarter: 2012Q2

REPORT INFORMATION
  Report Type: 
  Country: None (occurrence: None)
  Receive Date: 20120509
  Receipt Date: 20120424
  Transmission Date: 20120825
  Serious: Yes (Other)
  Sender: FDA-Public Use
  Company Number: US-ROCHE-712790

PATIENT

DRUGS (2)
  1. IRINOTECAN HCL [Suspect]
     Indication: CENTRAL NERVOUS SYSTEM NEOPLASM
     Route: 042
  2. AVASTIN [Suspect]
     Indication: CENTRAL NERVOUS SYSTEM NEOPLASM
     Route: 042

REACTIONS (7)
  - HYPERTENSION [None]
  - CEREBRAL ISCHAEMIA [None]
  - FATIGUE [None]
  - DRUG INEFFECTIVE [None]
  - CENTRAL NERVOUS SYSTEM HAEMORRHAGE [None]
  - PANCREATITIS [None]
  - NEUTROPENIA [None]
